FAERS Safety Report 8073836-6 (Version None)
Quarter: 2012Q1

REPORT INFORMATION
  Report Type: 
  Country: None (occurrence: None)
  Receive Date: 20120126
  Receipt Date: 20120123
  Transmission Date: 20120608
  Serious: No
  Sender: FDA-Public Use
  Company Number: US-PFIZER INC-2012018668

PATIENT
  Sex: Male
  Weight: 83.447 kg

DRUGS (2)
  1. ADVIL LIQUI-GELS [Suspect]
     Dosage: 200 MG, 2X/DAY
     Route: 048
     Dates: end: 20120120
  2. ADVIL LIQUI-GELS [Suspect]
     Indication: BACK PAIN
     Dosage: UNK, 2X/DAY
     Route: 048
     Dates: start: 20110101

REACTIONS (3)
  - MALAISE [None]
  - NAUSEA [None]
  - VOMITING [None]
